FAERS Safety Report 24024398 (Version 1)
Quarter: 2024Q2

REPORT INFORMATION
  Report Type: Report from Study
  Country: DK (occurrence: DK)
  Receive Date: 20240628
  Receipt Date: 20240628
  Transmission Date: 20240716
  Serious: No
  Sender: FDA-Public Use
  Company Number: DK-ROCHE-3472006

PATIENT
  Age: 82 Year
  Sex: Male

DRUGS (2)
  1. ALECTINIB [Suspect]
     Active Substance: ALECTINIB
     Indication: Non-small cell lung cancer
     Route: 048
     Dates: start: 20191108
  2. VABYSMO [Concomitant]
     Active Substance: FARICIMAB\FARICIMAB-SVOA
     Dosage: IN BOTH EYES

REACTIONS (2)
  - Fatigue [Not Recovered/Not Resolved]
  - Age-related macular degeneration [Not Recovered/Not Resolved]

NARRATIVE: CASE EVENT DATE: 20191201
